FAERS Safety Report 7864800-8 (Version None)
Quarter: 2011Q4

REPORT INFORMATION
  Report Type: 
  Country: None (occurrence: None)
  Receive Date: 20111028
  Receipt Date: 20101020
  Transmission Date: 20120403
  Serious: No
  Sender: FDA-Public Use
  Company Number: US-GLAXOSMITHKLINE-A0832875A

PATIENT
  Age: 78 Year
  Sex: Female

DRUGS (11)
  1. LIPITOR [Concomitant]
  2. FLUTICASONE PROPIONATE [Concomitant]
  3. DOXEPIN [Concomitant]
  4. LISINOPRIL [Concomitant]
  5. PROAIR HFA [Concomitant]
  6. ATENOLOL [Concomitant]
  7. MECLIZINE [Concomitant]
  8. FLOVENT [Suspect]
     Indication: WHEEZING
     Dosage: 2PUFF TWICE PER DAY
     Route: 055
     Dates: start: 20091101
  9. ADVAIR DISKUS 100/50 [Suspect]
     Indication: LUNG DISORDER
     Dosage: 1PUFF TWICE PER DAY
     Route: 055
     Dates: start: 20090501
  10. CLONAZEPAM [Concomitant]
  11. NASAL SPRAY [Concomitant]

REACTIONS (4)
  - DYSPEPSIA [None]
  - STOMATITIS [None]
  - HEADACHE [None]
  - POLLAKIURIA [None]
